FAERS Safety Report 22385841 (Version 2)
Quarter: 2023Q4

REPORT INFORMATION
  Report Type: Spontaneous
  Country: US (occurrence: US)
  Receive Date: 20230530
  Receipt Date: 20231103
  Transmission Date: 20240110
  Serious: Yes (Other)
  Sender: FDA-Public Use
  Company Number: US-PFIZER INC-202300204967

PATIENT
  Age: 68 Year
  Sex: Female
  Weight: 71.655 kg

DRUGS (5)
  1. IBRANCE [Suspect]
     Active Substance: PALBOCICLIB
     Indication: Breast cancer female
     Dosage: 100 MG WITH 1 125MG DAILY FOR 21 DAYS ON 7 DAYS OFF
     Dates: start: 201710
  2. IBRANCE [Suspect]
     Active Substance: PALBOCICLIB
     Dosage: 100 MG, CYCLIC (1 PO DAILY FOR 21 DAYS ON 7 DAYS OFF)
     Route: 048
     Dates: end: 20230821
  3. FASLODEX [Suspect]
     Active Substance: FULVESTRANT
     Dosage: UNK
     Dates: end: 202309
  4. XGEVA [Suspect]
     Active Substance: DENOSUMAB
     Dosage: UNK
     Dates: end: 202309
  5. FULVESTRANT [Concomitant]
     Active Substance: FULVESTRANT
     Dosage: UNK
     Dates: start: 201710

REACTIONS (6)
  - Tooth infection [Recovered/Resolved]
  - Tooth abscess [Recovered/Resolved]
  - Neutropenia [Unknown]
  - Leukopenia [Unknown]
  - Off label use [Unknown]
  - Headache [Unknown]
